FAERS Safety Report 18539782 (Version 1)
Quarter: 2020Q4

REPORT INFORMATION
  Report Type: Spontaneous
  Country: US (occurrence: US)
  Receive Date: 20201124
  Receipt Date: 20201124
  Transmission Date: 20210114
  Serious: Yes (Hospitalization, Other)
  Sender: FDA-Public Use
  Company Number: US-PFIZER INC-2020456619

PATIENT

DRUGS (31)
  1. BETAMETHASONE. [Suspect]
     Active Substance: BETAMETHASONE
     Dosage: UNK
     Route: 064
     Dates: start: 2019
  2. CITALOPRAM [Suspect]
     Active Substance: CITALOPRAM HYDROBROMIDE
     Indication: DELIRIUM
  3. VENLAFAXINE HCL [Suspect]
     Active Substance: VENLAFAXINE HYDROCHLORIDE
     Indication: FATIGUE
  4. BROMOCRIPTINE [Suspect]
     Active Substance: BROMOCRIPTINE
     Indication: BREAST ENLARGEMENT
     Dosage: 2.5 MG, 2X/DAY
     Route: 064
     Dates: start: 20190211
  5. PROGESTERONE. [Concomitant]
     Active Substance: PROGESTERONE
     Route: 064
  6. PROGESTERONE. [Concomitant]
     Active Substance: PROGESTERONE
     Route: 064
  7. VENLAFAXINE HCL [Suspect]
     Active Substance: VENLAFAXINE HYDROCHLORIDE
     Indication: PANIC REACTION
  8. OXYCODONE [Suspect]
     Active Substance: OXYCODONE
     Indication: PAIN
     Dosage: UNK
     Route: 064
     Dates: start: 2019
  9. CITALOPRAM [Suspect]
     Active Substance: CITALOPRAM HYDROBROMIDE
     Indication: ANXIETY
     Dosage: UNK
     Route: 064
     Dates: start: 2019
  10. LETROZOLE. [Concomitant]
     Active Substance: LETROZOLE
     Indication: OVULATION INDUCTION
     Dosage: 2.5 MG, CYCLIC (ON CYCLE DAYS 3 TO 7 WITH CYCLE DAY 12)
     Route: 064
     Dates: start: 20180322
  11. LUTEINIZING HORMONE-RELEASING HORMONE [Concomitant]
     Active Substance: GONADORELIN
     Route: 064
  12. BROMOCRIPTINE [Suspect]
     Active Substance: BROMOCRIPTINE
     Dosage: 10 MG, 2X/DAY
     Route: 064
     Dates: start: 2019
  13. METHADONE [Suspect]
     Active Substance: METHADONE HYDROCHLORIDE
     Dosage: 30 MG, 2X/DAY
     Route: 064
     Dates: start: 2019
  14. ENOXAPARIN [Suspect]
     Active Substance: ENOXAPARIN
     Indication: THROMBOSIS PROPHYLAXIS
     Dosage: UNK, DAILY
     Route: 064
     Dates: start: 2019
  15. IRON [Suspect]
     Active Substance: IRON
     Dosage: UNK
     Route: 064
     Dates: start: 2019
  16. MENOPUR [Concomitant]
     Active Substance: FOLLITROPIN\LUTEINIZING HORMONE
     Indication: IN VITRO FERTILISATION
     Dosage: UNK
     Route: 064
     Dates: start: 201809
  17. CABERGOLINE. [Suspect]
     Active Substance: CABERGOLINE
     Indication: BREAST ENLARGEMENT
     Dosage: 0.5 MG
     Route: 064
     Dates: start: 201903
  18. HYDROMORPHONE HYDROCHLORIDE. [Suspect]
     Active Substance: HYDROMORPHONE HYDROCHLORIDE
     Indication: BREAKTHROUGH PAIN
     Dosage: UNK
     Route: 064
     Dates: start: 2019
  19. FOLLISTIM [Concomitant]
     Active Substance: FOLLITROPIN
     Indication: IN VITRO FERTILISATION
     Dosage: UNK
     Route: 064
     Dates: start: 201809
  20. MAGNESIUM [Concomitant]
     Active Substance: MAGNESIUM
     Indication: PROPHYLAXIS
     Route: 064
  21. METHADONE [Suspect]
     Active Substance: METHADONE HYDROCHLORIDE
     Indication: PAIN
     Dosage: UNK
     Route: 064
     Dates: start: 2019
  22. CITALOPRAM [Suspect]
     Active Substance: CITALOPRAM HYDROBROMIDE
     Indication: FATIGUE
  23. ESTRADIOL. [Concomitant]
     Active Substance: ESTRADIOL
     Dosage: UNK
     Route: 064
     Dates: start: 201810
  24. VENLAFAXINE HCL [Suspect]
     Active Substance: VENLAFAXINE HYDROCHLORIDE
     Indication: ANXIETY
     Dosage: UNK
     Route: 064
     Dates: start: 2019
  25. TYLENOL [Suspect]
     Active Substance: ACETAMINOPHEN
     Indication: PAIN
     Dosage: UNK
     Route: 064
     Dates: start: 2019
  26. VASHE [Concomitant]
     Indication: WOUND TREATMENT
     Route: 064
  27. VENLAFAXINE HCL [Suspect]
     Active Substance: VENLAFAXINE HYDROCHLORIDE
     Indication: DELIRIUM
  28. BROMOCRIPTINE [Suspect]
     Active Substance: BROMOCRIPTINE
     Dosage: 5 MG, 2X/DAY
     Route: 064
     Dates: start: 2019
  29. OXYCODONE [Suspect]
     Active Substance: OXYCODONE
     Dosage: UNK (TITRATED TO MAXIMAL DOSES)
     Route: 064
     Dates: start: 2019
  30. CITALOPRAM [Suspect]
     Active Substance: CITALOPRAM HYDROBROMIDE
     Indication: PANIC REACTION
  31. GANIRELIX [Concomitant]
     Active Substance: GANIRELIX
     Indication: IN VITRO FERTILISATION
     Dosage: UNK
     Route: 064
     Dates: start: 201809

REACTIONS (4)
  - Necrotising enterocolitis neonatal [Unknown]
  - Maternal exposure during pregnancy [Unknown]
  - Premature baby [Unknown]
  - Neonatal respiratory distress syndrome [Unknown]
